FAERS Safety Report 9997808 (Version 1)
Quarter: 2014Q1

REPORT INFORMATION
  Report Type: Spontaneous
  Country: US (occurrence: US)
  Receive Date: 20140311
  Receipt Date: 20140311
  Transmission Date: 20141002
  Serious: Yes (Hospitalization)
  Sender: FDA-Public Use
  Company Number: US-B.I. PHARMACEUTICALS,INC./RIDGEFIELD-2014-BI-09916BP

PATIENT
  Sex: Female
  Weight: 86 kg

DRUGS (4)
  1. SPIRIVA [Suspect]
     Indication: CHRONIC OBSTRUCTIVE PULMONARY DISEASE
     Dosage: 18 MCG
     Route: 055
     Dates: start: 2007, end: 2013
  2. NORCO [Concomitant]
     Indication: BACK PAIN
     Route: 048
  3. OXYCONTIN [Concomitant]
     Indication: BACK PAIN
     Dosage: 20 MG
     Route: 048
  4. DULERA [Concomitant]
     Indication: CHRONIC OBSTRUCTIVE PULMONARY DISEASE
     Dosage: (INHALATION AEROSOL)
     Route: 055

REACTIONS (2)
  - Lumbar vertebral fracture [Not Recovered/Not Resolved]
  - Upper respiratory tract infection [Recovered/Resolved]
